FAERS Safety Report 8817730 (Version 3)
Quarter: 2012Q4

REPORT INFORMATION
  Report Type: 
  Country: US (occurrence: US)
  Receive Date: 20121001
  Receipt Date: 20121227
  Transmission Date: 20130627
  Serious: Yes (Hospitalization)
  Sender: FDA-Public Use
  Company Number: US-PFIZER INC-2012239318

PATIENT
  Age: 16 Year
  Sex: Female

DRUGS (3)
  1. CELEBREX [Suspect]
     Indication: STRESS FRACTURE
     Dosage: 200 mg, 1x/day (Daily)
     Route: 048
     Dates: end: 20120911
  2. CELEBREX [Suspect]
     Indication: FOOT PAIN
  3. ORTHO TRI CYCLEN [Suspect]
     Indication: ACNE
     Dosage: 1 Tab Daily
     Route: 048
     Dates: end: 20120911

REACTIONS (7)
  - Ischaemic stroke [Unknown]
  - Gait disturbance [Unknown]
  - Paraesthesia [Recovering/Resolving]
  - Hypoaesthesia [Recovering/Resolving]
  - Asthenia [Recovering/Resolving]
  - Dyslexia [Unknown]
  - Balance disorder [Unknown]
